FAERS Safety Report 5062280-1 (Version None)
Quarter: 2006Q3

REPORT INFORMATION
  Report Type: 
  Country: None (occurrence: None)
  Receive Date: 20060721
  Receipt Date: 20060710
  Transmission Date: 20061208
  Serious: Yes (Disabling, Other)
  Sender: FDA-Public Use
  Company Number: 2005089927

PATIENT
  Age: 65 Year
  Sex: Female

DRUGS (2)
  1. LIPITOR [Suspect]
     Indication: HYPERCHOLESTEROLAEMIA
     Dosage: 40 MG (40 MG, 1 IN 1 D) ORAL
     Route: 048
     Dates: start: 20050502, end: 20050530
  2. CITRACAL (CALCIUM CITRATE) [Concomitant]

REACTIONS (8)
  - ABDOMINAL DISCOMFORT [None]
  - DEPRESSION [None]
  - DIARRHOEA [None]
  - MIDDLE INSOMNIA [None]
  - OSTEOPOROSIS [None]
  - PANIC ATTACK [None]
  - STRESS [None]
  - SUICIDAL IDEATION [None]
